FAERS Safety Report 23977987 (Version 2)
Quarter: 2024Q3

REPORT INFORMATION
  Report Type: Spontaneous
  Country: ES (occurrence: ES)
  Receive Date: 20240614
  Receipt Date: 20240723
  Transmission Date: 20241016
  Serious: Yes (Other)
  Sender: JOHNSON AND JOHNSON
  Company Number: ES-ELI_LILLY_AND_COMPANY-ES202312003882

PATIENT
  Age: 50 Year
  Sex: Female

DRUGS (6)
  1. LOPERAMIDE HYDROCHLORIDE [Suspect]
     Active Substance: LOPERAMIDE HYDROCHLORIDE
     Indication: Diarrhoea
     Dosage: UNK, UNKNOWN
     Route: 065
  2. ABEMACICLIB [Suspect]
     Active Substance: ABEMACICLIB
     Indication: Breast cancer
     Dosage: 150 MG, BID
     Route: 048
     Dates: start: 20231128
  3. ABEMACICLIB [Suspect]
     Active Substance: ABEMACICLIB
     Dosage: 100 MG, BID
     Route: 048
  4. ABEMACICLIB [Suspect]
     Active Substance: ABEMACICLIB
     Dosage: 100 MG, BID
     Route: 048
  5. ANASTROZOLE [Concomitant]
     Active Substance: ANASTROZOLE
     Indication: Breast cancer
     Dosage: UNK
     Route: 065
     Dates: start: 202310
  6. CALCIUM [Concomitant]
     Active Substance: CALCIUM
     Indication: Breast cancer
     Dosage: UNK
     Route: 065
     Dates: start: 202310

REACTIONS (17)
  - Pertussis [Recovered/Resolved]
  - Diarrhoea [Recovering/Resolving]
  - Alopecia [Not Recovered/Not Resolved]
  - Peripheral swelling [Not Recovered/Not Resolved]
  - Oral herpes [Recovered/Resolved]
  - Swelling face [Not Recovered/Not Resolved]
  - Fluid retention [Unknown]
  - Decreased immune responsiveness [Recovering/Resolving]
  - Urinary tract infection [Recovered/Resolved]
  - Nail pigmentation [Not Recovered/Not Resolved]
  - Migraine [Recovered/Resolved]
  - Gastrointestinal pain [Not Recovered/Not Resolved]
  - Hyperhidrosis [Unknown]
  - Asthenia [Not Recovered/Not Resolved]
  - Fatigue [Recovering/Resolving]
  - Constipation [Recovering/Resolving]
  - Dizziness [Not Recovered/Not Resolved]

NARRATIVE: CASE EVENT DATE: 20231128
